FAERS Safety Report 18977711 (Version 4)
Quarter: 2022Q1

REPORT INFORMATION
  Report Type: Report from Study
  Country: ZA (occurrence: ZA)
  Receive Date: 20210306
  Receipt Date: 20220318
  Transmission Date: 20220424
  Serious: Yes (Other)
  Sender: FDA-Public Use
  Company Number: PHHY2018ZA161130

PATIENT
  Age: 46 Year
  Sex: Female

DRUGS (3)
  1. FINGOLIMOD HYDROCHLORIDE [Suspect]
     Active Substance: FINGOLIMOD HYDROCHLORIDE
     Indication: Relapsing-remitting multiple sclerosis
     Dosage: 0.5 MG QD
     Route: 048
     Dates: start: 201810
  2. FINGOLIMOD HYDROCHLORIDE [Suspect]
     Active Substance: FINGOLIMOD HYDROCHLORIDE
     Dosage: 0.5 MG
     Route: 048
     Dates: start: 20181113
  3. FINGOLIMOD HYDROCHLORIDE [Suspect]
     Active Substance: FINGOLIMOD HYDROCHLORIDE
     Dosage: 0.5 MG, QD
     Route: 048
     Dates: start: 20181114

REACTIONS (8)
  - Hyperbilirubinaemia [Unknown]
  - Bradycardia [Unknown]
  - Blood test abnormal [Not Recovered/Not Resolved]
  - Haemoglobin increased [Unknown]
  - Neutrophil count increased [Unknown]
  - Monocyte count increased [Unknown]
  - Gamma-glutamyltransferase increased [Unknown]
  - B-lymphocyte count decreased [Unknown]

NARRATIVE: CASE EVENT DATE: 20181113
